FAERS Safety Report 9508710 (Version 1)
Quarter: 2013Q1

REPORT INFORMATION
  Report Type: Spontaneous
  Country: US (occurrence: None)
  Receive Date: 20130305
  Receipt Date: 20130305
  Transmission Date: 20140127
  Serious: Yes (Other)
  Sender: FDA-Public Use
  Company Number: 163-21880-12090719

PATIENT
  Age: 62 Year
  Sex: Female

DRUGS (1)
  1. REVLIMID ( LENALIDOMIDE) ( 15 MILLIGRAM, CAPSULES) [Suspect]
     Indication: PLASMA CELL MYELOMA
     Dosage: 15 MG, 21 IN 28 D, PO
     Route: 048
     Dates: start: 20100915

REACTIONS (5)
  - Bone disorder [None]
  - Diarrhoea [None]
  - Constipation [None]
  - Pain [None]
  - Feeling cold [None]
